FAERS Safety Report 7542654-7 (Version None)
Quarter: 2011Q2

REPORT INFORMATION
  Report Type: 
  Country: None (occurrence: None)
  Receive Date: 20110613
  Receipt Date: 20110526
  Transmission Date: 20111010
  Serious: Yes (Other)
  Sender: FDA-Public Use
  Company Number: DE-JNJFOC-20110411319

PATIENT
  Sex: Female
  Weight: 84 kg

DRUGS (7)
  1. TAPENTADOL [Suspect]
     Indication: ARTHRALGIA
     Route: 065
     Dates: start: 20101203, end: 20101222
  2. METAMIZOL [Concomitant]
     Route: 065
  3. VOMEX A [Concomitant]
     Route: 065
  4. TAPENTADOL [Suspect]
     Route: 065
     Dates: end: 20110107
  5. PANTOPRAZOLE [Concomitant]
     Indication: GASTROINTESTINAL DISORDER THERAPY
     Route: 065
     Dates: start: 20101203, end: 20101222
  6. TARGIN [Concomitant]
     Route: 065
  7. DICLOFENAC SODIUM [Concomitant]
     Indication: OSTEOARTHRITIS
     Dates: end: 20101203

REACTIONS (2)
  - ABDOMINAL PAIN UPPER [None]
  - NAUSEA [None]
